FAERS Safety Report 23409256 (Version 1)
Quarter: 2024Q1

REPORT INFORMATION
  Report Type: Spontaneous
  Country: US (occurrence: None)
  Receive Date: 20240116
  Receipt Date: 20240116
  Transmission Date: 20240410
  Serious: No
  Sender: FDA-Public Use
  Company Number: None

PATIENT
  Age: 68 Year
  Sex: Male
  Weight: 79.38 kg

DRUGS (1)
  1. ACTEMRA ACTPEN [Suspect]
     Active Substance: TOCILIZUMAB
     Indication: Giant cell arteritis
     Dosage: FREQUENCY : WEEKLY;?
     Route: 058
     Dates: start: 202311

REACTIONS (4)
  - Furuncle [None]
  - Skin laceration [None]
  - Skin infection [None]
  - Impaired healing [None]
